FAERS Safety Report 17813478 (Version 1)
Quarter: 2020Q2

REPORT INFORMATION
  Report Type: Spontaneous
  Country: US (occurrence: US)
  Receive Date: 20200521
  Receipt Date: 20200521
  Transmission Date: 20200714
  Serious: Yes (Hospitalization)
  Sender: FDA-Public Use
  Company Number: US-ELI_LILLY_AND_COMPANY-US202005004491

PATIENT
  Age: 47 Year
  Sex: Male

DRUGS (2)
  1. HUMULIN 70/30 [Suspect]
     Active Substance: INSULIN HUMAN
     Indication: DIABETES MELLITUS
     Dosage: UNK, UNKNOWN
     Route: 058
     Dates: start: 201908
  2. HUMULIN 70/30 [Suspect]
     Active Substance: INSULIN HUMAN
     Dosage: UNK, UNKNOWN
     Route: 058

REACTIONS (6)
  - Chest pain [Unknown]
  - Urethral injury [Unknown]
  - Urethral disorder [Unknown]
  - Bladder disorder [Unknown]
  - Penile pain [Unknown]
  - Pain [Unknown]

NARRATIVE: CASE EVENT DATE: 20200509
